FAERS Safety Report 13286906 (Version 3)
Quarter: 2017Q1

REPORT INFORMATION
  Report Type: Spontaneous
  Country: FR (occurrence: FR)
  Receive Date: 20170302
  Receipt Date: 20170324
  Transmission Date: 20170428
  Serious: Yes (Disabling)
  Sender: FDA-Public Use
  Company Number: FR-SA-2017SA033729

PATIENT
  Sex: Female
  Weight: 32 kg

DRUGS (2)
  1. LEMTRADA [Suspect]
     Active Substance: ALEMTUZUMAB
     Indication: MULTIPLE SCLEROSIS
     Route: 042
     Dates: start: 201604, end: 201604
  2. LAROXYL [Concomitant]
     Active Substance: AMITRIPTYLINE
     Dosage: DROP
     Dates: start: 2015

REACTIONS (6)
  - Diplegia [Unknown]
  - Weight decreased [Unknown]
  - Multiple sclerosis relapse [Unknown]
  - Hypertension [Recovered/Resolved]
  - Paraparesis [Unknown]
  - Fatigue [Not Recovered/Not Resolved]

NARRATIVE: CASE EVENT DATE: 20160425
